FAERS Safety Report 10713805 (Version 1)
Quarter: 2015Q1

REPORT INFORMATION
  Report Type: Spontaneous
  Country: US (occurrence: US)
  Receive Date: 20150115
  Receipt Date: 20150115
  Transmission Date: 20150721
  Serious: No
  Sender: FDA-Public Use
  Company Number: US-PFIZER INC-2015011725

PATIENT
  Age: 79 Year
  Sex: Female

DRUGS (1)
  1. SULFASALAZINE. [Suspect]
     Active Substance: SULFASALAZINE
     Dosage: UNK

REACTIONS (4)
  - Peripheral swelling [Unknown]
  - Rash [Unknown]
  - Drug hypersensitivity [Unknown]
  - Lip swelling [Unknown]

NARRATIVE: CASE EVENT DATE: 2011
